FAERS Safety Report 7092184-4 (Version None)
Quarter: 2010Q4

REPORT INFORMATION
  Report Type: 
  Country: None (occurrence: None)
  Receive Date: 20101109
  Receipt Date: 20101104
  Transmission Date: 20110411
  Serious: Yes (Hospitalization)
  Sender: FDA-Public Use
  Company Number: CH-ABBOTT-10P-151-0683220-00

PATIENT
  Sex: Male
  Weight: 69 kg

DRUGS (8)
  1. CLARITHROMYCIN [Suspect]
     Indication: PRODUCT USED FOR UNKNOWN INDICATION
     Route: 048
     Dates: start: 20100817, end: 20100826
  2. ATACAND [Suspect]
     Indication: PRODUCT USED FOR UNKNOWN INDICATION
     Route: 048
  3. DEXAMETHASONE [Suspect]
     Indication: MULTIPLE MYELOMA
     Dates: start: 20100824, end: 20100830
  4. DEXAMETHASONE [Suspect]
     Dates: start: 20100913
  5. LENALIDOMIDE [Suspect]
     Indication: MULTIPLE MYELOMA
     Route: 048
     Dates: start: 20100824, end: 20100830
  6. LENALIDOMIDE [Suspect]
     Route: 048
     Dates: start: 20100921
  7. CLEXANE [Concomitant]
     Indication: THROMBOSIS PROPHYLAXIS
  8. ASPIRIN [Concomitant]
     Indication: THROMBOSIS PROPHYLAXIS

REACTIONS (3)
  - HYPOTENSION [None]
  - RENAL FAILURE ACUTE [None]
  - SEPSIS [None]
